FAERS Safety Report 8314977-5 (Version None)
Quarter: 2012Q2

REPORT INFORMATION
  Report Type: 
  Country: None (occurrence: None)
  Receive Date: 20120426
  Receipt Date: 20120104
  Transmission Date: 20120825
  Serious: No
  Sender: FDA-Public Use
  Company Number: US-MUTUAL PHARMACEUTICAL COMPANY, INC.-CLCY20120006

PATIENT
  Sex: Male
  Weight: 93.07 kg

DRUGS (3)
  1. COLCRYS [Suspect]
     Indication: GOUT
     Route: 048
     Dates: start: 20111201, end: 20111201
  2. LASIX [Concomitant]
     Indication: JOINT SWELLING
     Route: 048
  3. WARFARIN SODIUM [Concomitant]
     Indication: ANTICOAGULANT THERAPY
     Route: 048
     Dates: start: 20100101

REACTIONS (6)
  - PYREXIA [None]
  - DYSPHONIA [None]
  - MENTAL DISORDER [None]
  - DYSPNOEA [None]
  - SKIN DISCOLOURATION [None]
  - VISION BLURRED [None]
